FAERS Safety Report 5064968-5 (Version None)
Quarter: 2006Q3

REPORT INFORMATION
  Report Type: 
  Country: None (occurrence: None)
  Receive Date: 20060728
  Receipt Date: 20060706
  Transmission Date: 20061208
  Serious: Yes (Hospitalization, Other)
  Sender: FDA-Public Use
  Company Number: US-BOEHRINGER INGELHEIM PHARMACEUTICALS, INC.-2006-BP-07724BP

PATIENT
  Age: 53 Year
  Sex: Male
  Weight: 74.1 kg

DRUGS (9)
  1. APTIVUS/RITONAVIR CAPSULES [Suspect]
     Indication: HIV INFECTION
     Dosage: TPV/ RTV 1000/ 400 MG
     Route: 048
     Dates: start: 20050406
  2. APTIVUS/RITONAVIR CAPSULES [Suspect]
     Indication: ACQUIRED IMMUNODEFICIENCY SYNDROME
  3. MARAVIROX [Concomitant]
     Indication: HIV INFECTION
  4. EPIVIR [Concomitant]
     Dates: start: 20031203
  5. FUZEON [Concomitant]
     Dates: start: 20031203
  6. PREVACID [Concomitant]
     Dates: start: 20020101
  7. ZITHROMAX [Concomitant]
     Dates: start: 20031105
  8. AMITRIPTYLINE HCL [Concomitant]
     Dates: start: 19960831
  9. SEROSTIM [Concomitant]
     Route: 058
     Dates: start: 19961218

REACTIONS (3)
  - CEREBROVASCULAR ACCIDENT [None]
  - HAEMORRHAGE INTRACRANIAL [None]
  - HYPERTENSION [None]
